FAERS Safety Report 4429670-9 (Version None)
Quarter: 2004Q3

REPORT INFORMATION
  Report Type: 
  Country: None (occurrence: None)
  Receive Date: 20040819
  Receipt Date: 20040809
  Transmission Date: 20050211
  Serious: Yes (Other)
  Sender: FDA-Public Use
  Company Number: IL-MERCK-0408ISR00027

PATIENT
  Age: 23 Year
  Sex: Female

DRUGS (2)
  1. [THERAPY UNSPECIFIED] [Concomitant]
     Route: 042
  2. VIOXX [Suspect]
     Indication: INTERVERTEBRAL DISC PROTRUSION
     Route: 048

REACTIONS (10)
  - BENIGN INTRACRANIAL HYPERTENSION [None]
  - DRUG EFFECT DECREASED [None]
  - DRUG INEFFECTIVE [None]
  - LABORATORY TEST ABNORMAL [None]
  - NEPHRITIS INTERSTITIAL [None]
  - NERVE ROOT COMPRESSION [None]
  - OVERWEIGHT [None]
  - RENAL FAILURE [None]
  - RENAL FAILURE ACUTE [None]
  - RENAL TUBULAR NECROSIS [None]
